FAERS Safety Report 13158841 (Version 1)
Quarter: 2017Q1

REPORT INFORMATION
  Report Type: Spontaneous
  Country: US (occurrence: US)
  Receive Date: 20170127
  Receipt Date: 20170127
  Transmission Date: 20170428
  Serious: Yes (Other)
  Sender: FDA-Public Use
  Company Number: US-PRESTIGE BRANDS -1062426

PATIENT
  Sex: Female

DRUGS (1)
  1. GOODYS [Suspect]
     Active Substance: ACETAMINOPHEN\ASPIRIN\CAFFEINE
     Indication: HEADACHE
     Route: 048

REACTIONS (2)
  - Gastritis erosive [Not Recovered/Not Resolved]
  - Gastric ulcer [Not Recovered/Not Resolved]
